FAERS Safety Report 9309779 (Version 1)
Quarter: 2013Q2

REPORT INFORMATION
  Report Type: Spontaneous
  Country: US (occurrence: US)
  Receive Date: 20130525
  Receipt Date: 20130525
  Transmission Date: 20140414
  Serious: No
  Sender: FDA-Public Use
  Company Number: US-BRISTOL-MYERS SQUIBB COMPANY-18587360

PATIENT
  Age: 72 Year
  Sex: Male
  Weight: 104.31 kg

DRUGS (15)
  1. BYDUREON 2MG VIAL + SYRINGE [Suspect]
     Route: 058
     Dates: start: 20130104, end: 20130131
  2. REGLAN [Concomitant]
  3. LIPITOR [Concomitant]
  4. COREG [Concomitant]
  5. ADVAIR [Concomitant]
  6. LEXAPRO [Concomitant]
  7. FENOFIBRATE [Concomitant]
  8. ASPIRIN [Concomitant]
  9. LASIX [Concomitant]
  10. FERROUS SULFATE [Concomitant]
  11. FERROUS SULFATE [Concomitant]
  12. SPIRIVA [Concomitant]
  13. LEVOTHYROXINE [Concomitant]
  14. ESCITALOPRAM [Concomitant]
  15. STARLIX [Concomitant]

REACTIONS (4)
  - Hypophagia [Unknown]
  - Impaired gastric emptying [Unknown]
  - Weight decreased [Unknown]
  - Vomiting [Unknown]
